FAERS Safety Report 9009087 (Version 1)
Quarter: 2013Q1

REPORT INFORMATION
  Report Type: Spontaneous
  Country: US (occurrence: US)
  Receive Date: 20130111
  Receipt Date: 20130111
  Transmission Date: 20140127
  Serious: Yes (Disabling, Other)
  Sender: FDA-Public Use
  Company Number: US-ASTRAZENECA-2003UW03998

PATIENT
  Age: 60 Year
  Sex: Female
  Weight: 77.6 kg

DRUGS (4)
  1. NOLVADEX [Suspect]
     Indication: BREAST CANCER FEMALE
     Route: 048
     Dates: start: 200202
  2. NOLVADEX [Suspect]
     Indication: BREAST CANCER FEMALE
     Route: 048
  3. ARIMIDEX [Suspect]
     Route: 048
  4. ZOLOFT [Concomitant]

REACTIONS (6)
  - Fatigue [Not Recovered/Not Resolved]
  - Breast cancer female [Unknown]
  - Weight increased [Unknown]
  - Bone pain [Unknown]
  - Hot flush [Unknown]
  - Nausea [Unknown]
